FAERS Safety Report 6620045-0 (Version None)
Quarter: 2010Q1

REPORT INFORMATION
  Report Type: 
  Country: None (occurrence: None)
  Receive Date: 20100309
  Receipt Date: 20100304
  Transmission Date: 20100710
  Serious: Yes (Life-Threatening, Hospitalization)
  Sender: FDA-Public Use
  Company Number: US-ROCHE-616251

PATIENT
  Sex: Female
  Weight: 81.8 kg

DRUGS (24)
  1. TRASTUZUMAB [Suspect]
     Dosage: LOADING DOSE
     Route: 042
     Dates: start: 20080328
  2. TRASTUZUMAB [Suspect]
     Dosage: MAINTENANCE DOSE, DOSE FORM: PARENTERAL, LAST DOSE PRIOR TO SAE: 17 FEB 2010
     Route: 042
     Dates: start: 20080529, end: 20100225
  3. PERTUZUMAB [Suspect]
     Dosage: LOADING DOSE.
     Route: 042
  4. PERTUZUMAB [Suspect]
     Dosage: MAINTENANCE DOSE, DOSE FORM: PARENTERAL, LAST DOSE PRIOR TO SAE: 17 FEB 2010
     Route: 042
     Dates: start: 20080528, end: 20100225
  5. DOCETAXEL [Suspect]
     Route: 042
     Dates: start: 20080328
  6. DOCETAXEL [Suspect]
     Dosage: DOSE FORM: PARENTERAL, LAST DOSE PRIOR TO SAE: 14 JANUARY 2009
     Route: 042
     Dates: start: 20080529
  7. COUMADIN [Concomitant]
  8. MEPROLOL [Concomitant]
     Dates: start: 19610101
  9. PROVIGIL [Concomitant]
  10. LASIX [Concomitant]
     Dates: start: 20080101
  11. SYNTHROID [Concomitant]
     Dates: start: 19980101
  12. CYMBALTA [Concomitant]
     Dates: start: 20080101
  13. ACYCLOVIR [Concomitant]
  14. XANAX [Concomitant]
  15. XANAX [Concomitant]
     Dates: start: 20020101
  16. AMBIEN [Concomitant]
     Dates: start: 19980101
  17. OXYCODONE HCL [Concomitant]
     Dosage: DOSE ALSO REPORTED: 1-2 TABLETS PRN.
     Dates: start: 20080101
  18. ASPIRIN [Concomitant]
     Dates: start: 20090101
  19. K-DUR [Concomitant]
     Dates: start: 20080101
  20. PROTONIX [Concomitant]
     Dates: start: 20020101
  21. ALPRAZOLAM [Concomitant]
     Dates: start: 20020101
  22. POTASSIUM CHLORIDE [Concomitant]
     Dates: start: 20080101
  23. OXYCONTIN [Concomitant]
     Dates: start: 20080101
  24. MULTIPLE VITS [Concomitant]

REACTIONS (2)
  - CHEST PAIN [None]
  - VENTRICULAR FIBRILLATION [None]
